FAERS Safety Report 10192591 (Version 2)
Quarter: 2014Q2

REPORT INFORMATION
  Report Type: Spontaneous
  Country: GB (occurrence: GB)
  Receive Date: 20140523
  Receipt Date: 20140610
  Transmission Date: 20141212
  Serious: Yes (Other)
  Sender: FDA-Public Use
  Company Number: GB-PFIZER INC-2014142090

PATIENT
  Age: 61 Year
  Sex: Male
  Weight: 89 kg

DRUGS (2)
  1. CELECOXIB [Suspect]
     Dosage: UNK
     Route: 065
     Dates: start: 20140224
  2. EUCERIN UREA [Concomitant]
     Dosage: UNK
     Dates: start: 20140224, end: 20140303

REACTIONS (2)
  - Swollen tongue [Recovered/Resolved]
  - Lip swelling [Recovered/Resolved]
